FAERS Safety Report 9607818 (Version 2)
Quarter: 2013Q4

REPORT INFORMATION
  Report Type: Report from Study
  Country: IE (occurrence: IE)
  Receive Date: 20131009
  Receipt Date: 20131127
  Transmission Date: 20140711
  Serious: Yes (Hospitalization)
  Sender: FDA-Public Use
  Company Number: IE-US-EMD SERONO, INC.-7241773

PATIENT
  Age: 21 Year
  Sex: Female

DRUGS (4)
  1. REBIF [Suspect]
     Indication: RELAPSING-REMITTING MULTIPLE SCLEROSIS
     Route: 058
     Dates: start: 20130404
  2. REBIF [Suspect]
     Route: 058
     Dates: start: 2013
  3. REBIF [Suspect]
     Route: 058
     Dates: start: 2013
  4. LYRICA [Concomitant]
     Indication: PRODUCT USED FOR UNKNOWN INDICATION
     Dates: start: 201305

REACTIONS (3)
  - Paraesthesia [Recovering/Resolving]
  - Eye disorder [Recovering/Resolving]
  - Headache [Recovering/Resolving]
